FAERS Safety Report 10430758 (Version 1)
Quarter: 2014Q3

REPORT INFORMATION
  Report Type: Spontaneous
  Country: US (occurrence: US)
  Receive Date: 20140904
  Receipt Date: 20140904
  Transmission Date: 20150326
  Serious: Yes (Other)
  Sender: FDA-Public Use
  Company Number: PHHY2014US109535

PATIENT
  Age: 65 Year
  Sex: Female

DRUGS (19)
  1. CARVEDILOL. [Suspect]
     Active Substance: CARVEDILOL
     Indication: HYPERTENSION
  2. LIPITOR [Concomitant]
     Active Substance: ATORVASTATIN CALCIUM
  3. INFLUENZA VIRUS VACC SEASONAL INN [Suspect]
     Active Substance: INFLUENZA VIRUS VACCINE
     Indication: IMMUNISATION
     Dosage: 1 DF
     Route: 065
  4. NITROGLYCERIN. [Concomitant]
     Active Substance: NITROGLYCERIN
  5. PHENERGAN [Concomitant]
     Active Substance: PROMETHAZINE HYDROCHLORIDE
  6. WARFARIN [Concomitant]
     Active Substance: WARFARIN
  7. ADRENALINE [Concomitant]
     Active Substance: EPINEPHRINE
  8. ZANAFLEX [Concomitant]
     Active Substance: TIZANIDINE HYDROCHLORIDE
  9. EPIPEN [Concomitant]
     Active Substance: EPINEPHRINE
  10. MS CONTIN [Concomitant]
     Active Substance: MORPHINE SULFATE
  11. NEXIUM [Concomitant]
     Active Substance: ESOMEPRAZOLE MAGNESIUM
  12. POTASSIUM [Concomitant]
     Active Substance: POTASSIUM
  13. COREG CR [Suspect]
     Active Substance: CARVEDILOL PHOSPHATE
     Indication: HYPERTENSION
  14. CLONIDINE. [Concomitant]
     Active Substance: CLONIDINE
  15. CYMBALTA [Concomitant]
     Active Substance: DULOXETINE HYDROCHLORIDE
  16. FUROSEMIDE. [Concomitant]
     Active Substance: FUROSEMIDE
  17. KETOROLAC [Suspect]
     Active Substance: KETOROLAC\KETOROLAC TROMETHAMINE
  18. MINOXIDIL. [Concomitant]
     Active Substance: MINOXIDIL
  19. NITROSTAT [Concomitant]
     Active Substance: NITROGLYCERIN

REACTIONS (11)
  - Bradycardia [Unknown]
  - Head injury [Unknown]
  - Oropharyngeal pain [Unknown]
  - Rash [Unknown]
  - Blood pressure increased [Unknown]
  - Headache [Unknown]
  - Arrhythmia [Unknown]
  - Dyspnoea [Unknown]
  - Concussion [Unknown]
  - Fall [Unknown]
  - Drug ineffective [Unknown]
